FAERS Safety Report 9235976 (Version 1)
Quarter: 2013Q2

REPORT INFORMATION
  Report Type: Spontaneous
  Country: US (occurrence: US)
  Receive Date: 20130417
  Receipt Date: 20130417
  Transmission Date: 20140414
  Serious: Yes (Death, Hospitalization, Other)
  Sender: FDA-Public Use
  Company Number: US-JNJFOC-001-0184-M0000030

PATIENT
  Age: 91 Year
  Sex: Male
  Weight: 47.6 kg

DRUGS (4)
  1. BENADRYL [Suspect]
     Route: 048
  2. BENADRYL [Suspect]
     Indication: SEDATION
     Dosage: DAILY DOSE TEXT: UNK
     Route: 048
     Dates: start: 199403
  3. HALDOL DECANOATE [Suspect]
     Indication: SEDATION
     Dosage: FREQUENCY TEXT: UNK DAILY DOSE QTY: 3 MG
     Route: 065
     Dates: start: 199403
  4. ZOLOFT [Suspect]
     Indication: UNEVALUABLE EVENT
     Dosage: DAILY DOSE TEXT: UNK
     Route: 065
     Dates: start: 199403

REACTIONS (5)
  - Tardive dyskinesia [Fatal]
  - Depressed level of consciousness [Not Recovered/Not Resolved]
  - Aspiration [Not Recovered/Not Resolved]
  - Drug administration error [Not Recovered/Not Resolved]
  - Overdose [Unknown]
